FAERS Safety Report 8142975-3 (Version None)
Quarter: 2012Q1

REPORT INFORMATION
  Report Type: 
  Country: None (occurrence: None)
  Receive Date: 20120217
  Receipt Date: 20120208
  Transmission Date: 20120608
  Serious: Yes (Hospitalization)
  Sender: FDA-Public Use
  Company Number: US-BIOGENIDEC-2012BI004984

PATIENT
  Sex: Female

DRUGS (2)
  1. TYSABRI [Suspect]
     Indication: MULTIPLE SCLEROSIS
     Route: 042
     Dates: start: 20101015, end: 20101015
  2. TYSABRI [Suspect]
     Route: 042
     Dates: start: 20110803, end: 20111110

REACTIONS (7)
  - PYREXIA [None]
  - FALL [None]
  - DECUBITUS ULCER [None]
  - WRIST FRACTURE [None]
  - MOBILITY DECREASED [None]
  - DYSSTASIA [None]
  - PAIN [None]
